FAERS Safety Report 17855252 (Version 1)
Quarter: 2020Q2

REPORT INFORMATION
  Report Type: Spontaneous
  Country: US (occurrence: US)
  Receive Date: 20200603
  Receipt Date: 20200603
  Transmission Date: 20200714
  Serious: No
  Sender: FDA-Public Use
  Company Number: None

PATIENT
  Age: 49 Year
  Sex: Male
  Weight: 124 kg

DRUGS (7)
  1. NAFCILLIN 12 G CONTINUOUS INFUSION [Concomitant]
  2. PANTOPRAZOLE 40 MG PO BID [Concomitant]
  3. ELIQUIS [Suspect]
     Active Substance: APIXABAN
     Indication: THROMBOPHLEBITIS
     Route: 048
     Dates: start: 20190423, end: 20190424
  4. INSULIN REGULAR [Concomitant]
     Active Substance: INSULIN NOS
  5. METFORMIN 500 MG PO BID [Concomitant]
  6. BUTALBITAL, ACETAMINOPHEN, AND CAFFEINE [Concomitant]
     Active Substance: ACETAMINOPHEN\BUTALBITAL\CAFFEINE
  7. TOPIRAMATE 25 MG PO BID [Concomitant]

REACTIONS (2)
  - Pruritus [None]
  - Rash [None]

NARRATIVE: CASE EVENT DATE: 20190424
